FAERS Safety Report 5191383-6 (Version None)
Quarter: 2006Q4

REPORT INFORMATION
  Report Type: 
  Country: None (occurrence: None)
  Receive Date: 20061226
  Receipt Date: 20061206
  Transmission Date: 20070319
  Serious: Yes (Hospitalization)
  Sender: FDA-Public Use
  Company Number: FR-ROCHE-474154

PATIENT
  Age: 15 Year
  Sex: Female

DRUGS (2)
  1. ROACCUTANE [Suspect]
     Indication: ACNE
     Dosage: DOSAGE REGIMEN REPORTED AS ONE DOSE PER DAY.
     Route: 048
     Dates: start: 20061025, end: 20061109
  2. TIMOFEROL [Suspect]
     Route: 048
     Dates: start: 20061025, end: 20061109

REACTIONS (9)
  - ABDOMINAL PAIN [None]
  - BLOOD CREATININE DECREASED [None]
  - DIARRHOEA [None]
  - EOSINOPHIL COUNT INCREASED [None]
  - PRURITUS [None]
  - PYREXIA [None]
  - URTICARIA [None]
  - VOMITING [None]
  - WHITE BLOOD CELL COUNT INCREASED [None]
